FAERS Safety Report 9706849 (Version 2)
Quarter: 2013Q4

REPORT INFORMATION
  Report Type: Spontaneous
  Country: JP (occurrence: JP)
  Receive Date: 20131125
  Receipt Date: 20131221
  Transmission Date: 20140711
  Serious: Yes (Other)
  Sender: FDA-Public Use
  Company Number: JP-009507513-1311JPN009282

PATIENT
  Age: 81 Year
  Sex: Female

DRUGS (8)
  1. BETAMETHASONE SODIUM PHOSPHATE [Suspect]
     Indication: CACHEXIA
     Dosage: 4 MG, TWICE DAILY
     Route: 048
     Dates: start: 20130711
  2. CYMBALTA [Suspect]
     Indication: DEPRESSION
     Dosage: 20 MG DAILY DOSE
     Route: 048
     Dates: start: 20130713, end: 20130909
  3. LENDORMIN [Suspect]
     Indication: INSOMNIA
     Dosage: 0.25MG DAILY DOSE
     Route: 048
     Dates: start: 20130904, end: 20130909
  4. ROZEREM [Suspect]
     Indication: INSOMNIA
     Dosage: 8MG DAILY DOSE
     Route: 048
     Dates: start: 20130712, end: 20130801
  5. SAIREI-TO [Suspect]
     Indication: OEDEMA
     Dosage: 12G DAILY DOSE
     Route: 048
     Dates: start: 20130704, end: 20130725
  6. DEPAS [Suspect]
     Indication: DEPRESSION
     Dosage: 0.5 MG DAILY DOSE
     Route: 048
     Dates: start: 20130306
  7. [THERAPY UNSPECIFIED] [Concomitant]
     Dosage: UNK
     Dates: start: 20130527, end: 20130527
  8. [THERAPY UNSPECIFIED] [Concomitant]
     Dosage: UNK
     Dates: start: 20130704, end: 20130704

REACTIONS (1)
  - Inappropriate antidiuretic hormone secretion [Recovered/Resolved]
